FAERS Safety Report 6966132 (Version 1)
Quarter: 2020Q3

REPORT INFORMATION
  Report Type: Report from Study
  Country: US (occurrence: US)
  Receive Date: 20090410
  Receipt Date: 20090410
  Transmission Date: 20201104
  Serious: Yes (Hospitalization)
  Sender: FDA-Public Use
  Company Number: US-ROCHE-625304

PATIENT
  Age: 82 Year
  Sex: Female

DRUGS (3)
  1. IBANDRONIC ACID. [Suspect]
     Active Substance: IBANDRONIC ACID
     Indication: OSTEOPOROSIS
     Dosage: STOP DATE REPORTED AS: APRIL 2009, FORM: PILL, OTHER INDICATION: OSTEOPENIA.
     Route: 065
     Dates: start: 200712
  2. OSCAL [Concomitant]
     Active Substance: CALCIUM CARBONATE
  3. ASPIRIN. [Concomitant]
     Active Substance: ASPIRIN

REACTIONS (3)
  - Flatulence [Unknown]
  - Diarrhoea [Unknown]
  - Patella fracture [Unknown]

NARRATIVE: CASE EVENT DATE: 20080810
